FAERS Safety Report 14404942 (Version 3)
Quarter: 2018Q1

REPORT INFORMATION
  Report Type: Spontaneous
  Country: US (occurrence: US)
  Receive Date: 20180118
  Receipt Date: 20180122
  Transmission Date: 20180509
  Serious: No
  Sender: FDA-Public Use
  Company Number: US-009507513-1801USA003649

PATIENT
  Age: 39 Year
  Sex: Female

DRUGS (4)
  1. PREGNYL [Suspect]
     Active Substance: CHORIOGONADOTROPIN ALFA
     Indication: INFERTILITY FEMALE
     Dosage: 10,000 IU 36 HOURS PRIOR
     Route: 058
     Dates: start: 20171220
  2. GANIRELIX ACETATE INJECTION [Suspect]
     Active Substance: GANIRELIX ACETATE
     Indication: INFERTILITY FEMALE
     Dosage: 250 MICROGRAM, QD
     Route: 058
     Dates: start: 20171220
  3. FOLLISTIM AQ [Suspect]
     Active Substance: FOLLITROPIN
     Indication: INFERTILITY FEMALE
     Dosage: 225 DF, BID
     Route: 058
     Dates: start: 20171220
  4. LEUPROLIDE [Concomitant]
     Active Substance: LEUPROLIDE

REACTIONS (5)
  - Hypersensitivity [Unknown]
  - Abdominal pain upper [Unknown]
  - Injection site mass [Unknown]
  - Dizziness [Unknown]
  - Malaise [Unknown]

NARRATIVE: CASE EVENT DATE: 20180109
